FAERS Safety Report 4459051-3 (Version None)
Quarter: 2004Q3

REPORT INFORMATION
  Report Type: 
  Country: None (occurrence: None)
  Receive Date: 20040927
  Receipt Date: 20040916
  Transmission Date: 20050211
  Serious: Yes (Hospitalization)
  Sender: FDA-Public Use
  Company Number: JP-JNJFOC-20040700722

PATIENT
  Sex: Female
  Weight: 45 kg

DRUGS (12)
  1. REMICADE [Suspect]
     Route: 042
  2. REMICADE [Suspect]
     Route: 042
  3. REMICADE [Suspect]
     Route: 042
  4. REMICADE [Suspect]
     Indication: RHEUMATOID ARTHRITIS
     Route: 042
  5. METHOTREXATE [Concomitant]
  6. METHOTREXATE [Concomitant]
     Indication: RHEUMATOID ARTHRITIS
  7. PREDONIN [Concomitant]
     Indication: RHEUMATOID ARTHRITIS
     Route: 049
  8. LOXONIN [Concomitant]
     Indication: RHEUMATOID ARTHRITIS
     Route: 049
  9. ASPARA CA [Concomitant]
     Route: 049
  10. NIVADIL [Concomitant]
     Route: 049
  11. ANPLAG [Concomitant]
     Route: 049
  12. STARSIS [Concomitant]
     Route: 049

REACTIONS (1)
  - PERITONEAL TUBERCULOSIS [None]
